FAERS Safety Report 4637686-2 (Version None)
Quarter: 2005Q2

REPORT INFORMATION
  Report Type: 
  Country: None (occurrence: None)
  Receive Date: 20050325
  Receipt Date: 20041220
  Transmission Date: 20051028
  Serious: No
  Sender: FDA-Public Use
  Company Number: USA041184591

PATIENT
  Age: 76 Year
  Sex: Female

DRUGS (5)
  1. FORTEO [Suspect]
     Indication: OSTEOPOROSIS
     Dates: start: 20041118, end: 20041215
  2. EVISTA [Suspect]
     Dates: start: 20010101
  3. ACTONEL [Concomitant]
  4. COZAAR [Concomitant]
  5. PREVACID [Concomitant]

REACTIONS (6)
  - COLONOSCOPY [None]
  - EXTRASYSTOLES [None]
  - FATIGUE [None]
  - FEELING ABNORMAL [None]
  - FEELING HOT [None]
  - PULSE PRESSURE INCREASED [None]
